FAERS Safety Report 18396187 (Version 2)
Quarter: 2020Q4

REPORT INFORMATION
  Report Type: Spontaneous
  Country: US (occurrence: US)
  Receive Date: 20201019
  Receipt Date: 20201022
  Transmission Date: 20210114
  Serious: Yes (Hospitalization)
  Sender: FDA-Public Use
  Company Number: US-JNJFOC-20201010747

PATIENT
  Age: 2 Month
  Sex: Female

DRUGS (1)
  1. AVEENO BABY ECZEMA THERAPY [Suspect]
     Active Substance: OATMEAL
     Indication: ECZEMA
     Dosage: NOT MUCH TWICE
     Route: 061
     Dates: start: 20200930

REACTIONS (2)
  - Thermal burn [Recovered/Resolved]
  - Eczema [Recovered/Resolved]

NARRATIVE: CASE EVENT DATE: 20200930
